FAERS Safety Report 9487010 (Version 2)
Quarter: 2014Q1

REPORT INFORMATION
  Report Type: Spontaneous
  Country: JP (occurrence: JP)
  Receive Date: 20130829
  Receipt Date: 20140131
  Transmission Date: 20141002
  Serious: Yes (Other)
  Sender: FDA-Public Use
  Company Number: JP-VIIV HEALTHCARE LIMITED-B0917498A

PATIENT
  Age: 48 Year
  Sex: Male

DRUGS (4)
  1. EPIVIR [Suspect]
     Route: 048
  2. ZIAGEN [Suspect]
     Route: 048
  3. ATAZANAVIR [Suspect]
     Route: 048
  4. RITONAVIR [Suspect]
     Route: 048

REACTIONS (2)
  - Pancreatitis [Unknown]
  - Hypertriglyceridaemia [Unknown]
